FAERS Safety Report 6917600-7 (Version None)
Quarter: 2010Q3

REPORT INFORMATION
  Report Type: 
  Country: None (occurrence: None)
  Receive Date: 20100810
  Receipt Date: 20081222
  Transmission Date: 20110219
  Serious: No
  Sender: FDA-Public Use
  Company Number: US-PFIZER INC-2008157380

PATIENT
  Age: 73 Year
  Sex: Female
  Weight: 64.399 kg

DRUGS (6)
  1. LIPITOR [Suspect]
  2. TYLENOL ARTHRITIS EXTENDED RELIEF [Suspect]
     Dosage: 650 MG, 2X/DAY
     Dates: start: 20040101
  3. PLAVIX [Concomitant]
     Dosage: 75 MG, 1X/DAY
  4. PRILOSEC [Concomitant]
  5. TOPROL-XL [Concomitant]
  6. LISINOPRIL [Concomitant]

REACTIONS (3)
  - ARTHRITIS [None]
  - LIVER FUNCTION TEST ABNORMAL [None]
  - THERAPEUTIC RESPONSE DECREASED [None]
